FAERS Safety Report 8887869 (Version 3)
Quarter: 2016Q2

REPORT INFORMATION
  Report Type: Report from Study
  Country: DE (occurrence: DE)
  Receive Date: 20121106
  Receipt Date: 20160420
  Transmission Date: 20160815
  Serious: Yes (Death, Disabling)
  Sender: FDA-Public Use
  Company Number: DE-CELGENEUS-062-21880-12103224

PATIENT
  Age: 67 Year
  Sex: Female
  Weight: 58 kg

DRUGS (2)
  1. BISPHOSPHONATES [Concomitant]
     Active Substance: UNSPECIFIED INGREDIENT
     Indication: PLASMA CELL MYELOMA
     Route: 065
     Dates: start: 201009
  2. REVLIMID [Suspect]
     Active Substance: LENALIDOMIDE
     Indication: PLASMA CELL MYELOMA
     Dosage: 5 MILLIGRAM
     Route: 048
     Dates: start: 20111227, end: 20121024

REACTIONS (1)
  - Myelodysplastic syndrome [Fatal]

NARRATIVE: CASE EVENT DATE: 20121024
